FAERS Safety Report 7599740-5 (Version None)
Quarter: 2011Q2

REPORT INFORMATION
  Report Type: 
  Country: None (occurrence: None)
  Receive Date: 20110620
  Receipt Date: 20110323
  Transmission Date: 20111010
  Serious: Yes (Hospitalization)
  Sender: FDA-Public Use
  Company Number: UTC-005792

PATIENT
  Age: 33 Year
  Sex: Female
  Weight: 86.8 kg

DRUGS (3)
  1. TRACLEER [Concomitant]
  2. ADCIRCA [Concomitant]
  3. TYVASO [Suspect]
     Indication: PULMONARY ARTERIAL HYPERTENSION
     Dosage: 96 MCG (24 MCG, 4 IN 1 D), INHALATION
     Route: 055
     Dates: start: 20110304

REACTIONS (3)
  - SYNCOPE [None]
  - COUGH [None]
  - HEADACHE [None]
